FAERS Safety Report 11376899 (Version 1)
Quarter: 2015Q3

REPORT INFORMATION
  Report Type: Report from Study
  Country: BR (occurrence: BR)
  Receive Date: 20150813
  Receipt Date: 20150813
  Transmission Date: 20151125
  Serious: Yes (Hospitalization, Other)
  Sender: FDA-Public Use
  Company Number: BR-ABBVIE-15K-020-1443151-00

PATIENT
  Sex: Male
  Weight: 72 kg

DRUGS (5)
  1. REVANGE [Concomitant]
     Indication: ARTHRITIS
     Route: 048
  2. HUMIRA [Suspect]
     Active Substance: ADALIMUMAB
     Indication: RHEUMATOID ARTHRITIS
     Route: 058
     Dates: start: 20090101, end: 20150727
  3. TANDRILAX [Concomitant]
     Active Substance: ACETAMINOPHEN\CAFFEINE\CARISOPRODOL\DICLOFENAC SODIUM
     Indication: ARTHRITIS
     Route: 048
  4. DEFLAZACORT [Concomitant]
     Active Substance: DEFLAZACORT
     Indication: ARTHRITIS
     Route: 048
  5. PREGABALIN. [Concomitant]
     Active Substance: PREGABALIN
     Indication: ARTHRITIS
     Route: 048

REACTIONS (3)
  - Feeling abnormal [Unknown]
  - Hypertension [Unknown]
  - Tuberculosis [Recovering/Resolving]

NARRATIVE: CASE EVENT DATE: 2015
